FAERS Safety Report 6547600-0 (Version None)
Quarter: 2010Q1

REPORT INFORMATION
  Report Type: 
  Country: None (occurrence: None)
  Receive Date: 20100122
  Receipt Date: 20100115
  Transmission Date: 20100710
  Serious: Yes (Hospitalization)
  Sender: FDA-Public Use
  Company Number: AU-MERCK-1001USA01559

PATIENT
  Age: 71 Year
  Sex: Female

DRUGS (8)
  1. VYTORIN [Suspect]
     Indication: METABOLIC DISORDER
     Route: 048
     Dates: end: 20090525
  2. AMLODIPINE [Concomitant]
     Route: 065
  3. GLICLAZIDE [Concomitant]
     Route: 065
  4. IRBESARTAN [Concomitant]
     Route: 065
  5. MAGNESIUM ALGINATE [Concomitant]
     Route: 065
  6. PAROXETINE HYDROCHLORIDE [Concomitant]
     Route: 065
  7. THIAMINE [Concomitant]
     Route: 065
  8. VITAMINS (UNSPECIFIED) [Concomitant]
     Route: 065

REACTIONS (4)
  - ALANINE AMINOTRANSFERASE INCREASED [None]
  - BLOOD ALKALINE PHOSPHATASE INCREASED [None]
  - BLOOD CREATINE PHOSPHOKINASE INCREASED [None]
  - FALL [None]
